FAERS Safety Report 9744534 (Version 1)
Quarter: 2013Q4

REPORT INFORMATION
  Report Type: Spontaneous
  Country: US (occurrence: US)
  Receive Date: 20131210
  Receipt Date: 20131210
  Transmission Date: 20140711
  Serious: Yes (Death)
  Sender: FDA-Public Use
  Company Number: US-B.I. PHARMACEUTICALS,INC./RIDGEFIELD-2013-BI-41282BP

PATIENT
  Sex: Female

DRUGS (2)
  1. PRADAXA [Suspect]
     Dates: start: 200804, end: 20080522
  2. PRADAXA [Suspect]
     Dates: start: 20080527, end: 20100323

REACTIONS (2)
  - Death [Fatal]
  - Adverse event [Unknown]
